FAERS Safety Report 6772243-3 (Version None)
Quarter: 2010Q2

REPORT INFORMATION
  Report Type: 
  Country: None (occurrence: None)
  Receive Date: 20100616
  Receipt Date: 20090430
  Transmission Date: 20101027
  Serious: No
  Sender: FDA-Public Use
  Company Number: US-ASTRAZENECA-2009UW10998

PATIENT
  Age: 75 Year
  Sex: Female
  Weight: 67.1 kg

DRUGS (5)
  1. PULMICORT RESPULES [Suspect]
     Dosage: 0.5MG/ML
     Route: 055
     Dates: start: 20081101
  2. PULMICORT RESPULES [Suspect]
     Dosage: 0.25 MG/ML
     Route: 055
  3. SINGULAIR [Concomitant]
  4. ALBUTEROL [Concomitant]
  5. HCTZ [Concomitant]

REACTIONS (3)
  - DYSPHONIA [None]
  - MUSCLE SPASMS [None]
  - RHINORRHOEA [None]
